FAERS Safety Report 15832243 (Version 7)
Quarter: 2020Q1

REPORT INFORMATION
  Report Type: Report from Study
  Country: US (occurrence: US)
  Receive Date: 20190116
  Receipt Date: 20200129
  Transmission Date: 20200409
  Serious: Yes (Other)
  Sender: FDA-Public Use
  Company Number: US-MALLINCKRODT-T201805482

PATIENT
  Age: 52 Year
  Sex: Female

DRUGS (6)
  1. REPOSITORY CORTICOTROPIN INJECTION [Suspect]
     Active Substance: CORTICOTROPIN
     Dosage: 100 UNITS EVERY 4 DAYS
     Route: 058
  2. REPOSITORY CORTICOTROPIN INJECTION [Suspect]
     Active Substance: CORTICOTROPIN
     Indication: KERATITIS
     Dosage: 80 UNITS / 1 ML EVERY 3 DAYS / EVERY 72 HOURS
     Route: 058
     Dates: start: 20181204, end: 20181204
  3. REPOSITORY CORTICOTROPIN INJECTION [Suspect]
     Active Substance: CORTICOTROPIN
     Dosage: 80 UNITS / 1ML, EVERY 4 DAYS
     Route: 058
     Dates: start: 2018
  4. REPOSITORY CORTICOTROPIN INJECTION [Suspect]
     Active Substance: CORTICOTROPIN
     Dosage: 80 UNITS / 1 ML, 1 TIME WEEKLY (THURSDAY)
     Route: 058
     Dates: start: 20181221, end: 201905
  5. REPOSITORY CORTICOTROPIN INJECTION [Suspect]
     Active Substance: CORTICOTROPIN
     Indication: UVEITIS
     Dosage: 80 UNITS / 1 ML EVERY 3 DAYS / EVERY 72 HOURS
     Route: 058
     Dates: start: 20180908, end: 20181106
  6. REPOSITORY CORTICOTROPIN INJECTION [Suspect]
     Active Substance: CORTICOTROPIN
     Dosage: 100 UNITS EVERY 5 DAYS
     Route: 058
     Dates: start: 201905

REACTIONS (10)
  - Inappropriate schedule of product administration [Unknown]
  - Wrong technique in product usage process [Not Recovered/Not Resolved]
  - Dizziness [Unknown]
  - Cough [Unknown]
  - Fear of injection [Unknown]
  - Arthralgia [Recovering/Resolving]
  - Blood pressure increased [Not Recovered/Not Resolved]
  - Heart rate increased [Unknown]
  - Injection site discolouration [Not Recovered/Not Resolved]
  - Blood pressure fluctuation [Not Recovered/Not Resolved]

NARRATIVE: CASE EVENT DATE: 2018
